FAERS Safety Report 6674691-9 (Version None)
Quarter: 2010Q2

REPORT INFORMATION
  Report Type: 
  Country: None (occurrence: None)
  Receive Date: 20100409
  Receipt Date: 20100325
  Transmission Date: 20101027
  Serious: Yes (Hospitalization)
  Sender: FDA-Public Use
  Company Number: BR-ELI_LILLY_AND_COMPANY-BR201003007091

PATIENT
  Sex: Female
  Weight: 32 kg

DRUGS (6)
  1. FORTEO [Suspect]
     Indication: OSTEOPOROSIS
     Dosage: UNK, UNKNOWN
     Route: 058
     Dates: start: 20081101
  2. MODURETIC 5-50 [Concomitant]
     Dosage: 50 MG, UNKNOWN
     Route: 065
  3. LEVOTHYROXINE SODIUM [Concomitant]
     Indication: HYPOTHYROIDISM
     Dosage: 50 MG, UNKNOWN
     Route: 065
  4. CALCIUM [Concomitant]
     Dosage: UNK, 2/D
     Route: 065
  5. DIPIRONA [Concomitant]
     Indication: PAIN
  6. PARACETAMOL [Concomitant]
     Indication: PAIN

REACTIONS (3)
  - DEHYDRATION [None]
  - MALNUTRITION [None]
  - WEIGHT DECREASED [None]
